FAERS Safety Report 11190153 (Version 1)
Quarter: 2015Q2

REPORT INFORMATION
  Report Type: Spontaneous
  Country: US (occurrence: None)
  Receive Date: 20150601
  Receipt Date: 20150601
  Transmission Date: 20150821
  Serious: Yes (Hospitalization, Other)
  Sender: FDA-Public Use
  Company Number: 2013-002914

PATIENT
  Age: 62 Year
  Sex: Female

DRUGS (26)
  1. ACTONEL [Suspect]
     Active Substance: RISEDRONATE SODIUM
     Indication: OSTEOPOROSIS PROPHYLAXIS
     Route: 048
     Dates: start: 20050719, end: 201109
  2. FLUDROCORTISONE [Concomitant]
     Active Substance: FLUDROCORTISONE
  3. FLUTICASONE [Concomitant]
     Active Substance: FLUTICASONE\FLUTICASONE PROPIONATE
  4. MORPHINE SULFATE. [Concomitant]
     Active Substance: MORPHINE SULFATE
  5. CALCITRIOL. [Concomitant]
     Active Substance: CALCITRIOL
  6. OMEPRAZOLE. [Concomitant]
     Active Substance: OMEPRAZOLE
  7. LIPITOR [Concomitant]
     Active Substance: ATORVASTATIN CALCIUM
  8. OXYCODONE W/PARACETAMOL (OXYCODONE, PARACETAMOL) [Concomitant]
  9. PANTOPRAZOLE [Concomitant]
     Active Substance: PANTOPRAZOLE SODIUM
  10. GABAPENTIN. [Concomitant]
     Active Substance: GABAPENTIN
  11. THERAGRAN-M /00610701/ (MINERALS NOS, VITAMINS NOS) [Concomitant]
  12. HYDROCORTISONE. [Concomitant]
     Active Substance: HYDROCORTISONE
  13. DESOXIMETASONE. [Concomitant]
     Active Substance: DESOXIMETASONE
  14. ALLOPURINOL. [Concomitant]
     Active Substance: ALLOPURINOL
  15. VANCOCIN [Concomitant]
     Active Substance: VANCOMYCIN HYDROCHLORIDE
  16. KIONEX (SODIUM POLYSTYRENE SULFONATE) [Concomitant]
  17. CALCIUM WITH VITAMIN D /00944201/ (CALCIUM CARBONATE, COLECALCIFEROL) [Concomitant]
  18. LISINOPRIL. [Concomitant]
     Active Substance: LISINOPRIL
  19. LEVOTHYROXINE [Concomitant]
     Active Substance: LEVOTHYROXINE
  20. CARISOPRODOL. [Concomitant]
     Active Substance: CARISOPRODOL
  21. HYDROCODONE W/APAP (HYDROCODONE, PARACETAMOL) [Concomitant]
  22. AZITHROMYCIN [Concomitant]
     Active Substance: AZITHROMYCIN ANHYDROUS
  23. ACTONEL [Suspect]
     Active Substance: RISEDRONATE SODIUM
     Indication: OSTEOPOROSIS
     Route: 048
     Dates: start: 20050719, end: 201109
  24. CYCLOBENZAPRINE [Concomitant]
     Active Substance: CYCLOBENZAPRINE
  25. FERROUS GLUCONATE [Concomitant]
     Active Substance: FERROUS GLUCONATE
  26. FOLPLEX (CYANOCOBALAMIN, FOLIC ACID, PYRIDOXINE HYDROCHLORIDE) [Concomitant]

REACTIONS (8)
  - Radius fracture [None]
  - Pathological fracture [None]
  - Bone disorder [None]
  - Stress fracture [None]
  - Fall [None]
  - Pain [None]
  - Femur fracture [None]
  - Low turnover osteopathy [None]

NARRATIVE: CASE EVENT DATE: 20110929
